FAERS Safety Report 15307122 (Version 3)
Quarter: 2018Q3

REPORT INFORMATION
  Report Type: Other
  Country: CN (occurrence: CN)
  Receive Date: 20180822
  Receipt Date: 20180828
  Transmission Date: 20181010
  Serious: Yes (Death, Other)
  Sender: FDA-Public Use
  Company Number: CN-ACTELION-A-CH2018-177639

PATIENT
  Age: 35 Year
  Sex: Male

DRUGS (2)
  1. BOSENTAN. [Suspect]
     Active Substance: BOSENTAN
     Indication: PULMONARY ARTERIAL HYPERTENSION
     Dosage: 62.5 MG, BID
     Route: 048
  2. BOSENTAN. [Suspect]
     Active Substance: BOSENTAN
     Dosage: 125 MG, BID
     Route: 048

REACTIONS (6)
  - Pulmonary hypertensive crisis [Unknown]
  - Chest discomfort [Unknown]
  - Right ventricular failure [Unknown]
  - Cardiogenic shock [Fatal]
  - Tachypnoea [Unknown]
  - Hypertrophic cardiomyopathy [Unknown]
